FAERS Safety Report 21059567 (Version 1)
Quarter: 2022Q3

REPORT INFORMATION
  Report Type: Spontaneous
  Country: US (occurrence: None)
  Receive Date: 20220708
  Receipt Date: 20220708
  Transmission Date: 20221027
  Serious: Yes (Other)
  Sender: FDA-Public Use
  Company Number: 2022A241416

PATIENT
  Age: 52 Year
  Sex: Female

DRUGS (4)
  1. GEFITINIB [Suspect]
     Active Substance: GEFITINIB
     Route: 048
  2. OSIMERTINIB [Suspect]
     Active Substance: OSIMERTINIB
     Route: 048
  3. ERLOTINIB [Concomitant]
     Active Substance: ERLOTINIB
     Route: 065
  4. AFATINIB [Concomitant]
     Active Substance: AFATINIB
     Route: 065

REACTIONS (3)
  - Pulmonary mass [Unknown]
  - Lymphadenopathy [Unknown]
  - Adenocarcinoma [Unknown]
